FAERS Safety Report 18516533 (Version 1)
Quarter: 2020Q4

REPORT INFORMATION
  Report Type: Spontaneous
  Country: US (occurrence: US)
  Receive Date: 20201117
  Receipt Date: 20201117
  Transmission Date: 20210114
  Serious: Yes (Death)
  Sender: FDA-Public Use
  Company Number: None

PATIENT
  Age: 84 Year
  Sex: Female

DRUGS (14)
  1. TADALAFIL 20MG TAB 60/BO: 20MG (DR REDDY) [Suspect]
     Active Substance: TADALAFIL
     Indication: PULMONARY ARTERIAL HYPERTENSION
     Route: 048
     Dates: start: 201810, end: 202011
  2. MAGNESIUM OXIDE. [Concomitant]
     Active Substance: MAGNESIUM OXIDE
  3. HUMULIN R [Concomitant]
     Active Substance: INSULIN HUMAN
  4. REFESH OPHT DROP [Concomitant]
  5. DUONEB [Concomitant]
     Active Substance: ALBUTEROL SULFATE\IPRATROPIUM BROMIDE
  6. ATENOLOL. [Concomitant]
     Active Substance: ATENOLOL
  7. FUROSEMIDE. [Concomitant]
     Active Substance: FUROSEMIDE
  8. FAMOTIDINE. [Concomitant]
     Active Substance: FAMOTIDINE
  9. HUMULIN 70/30 [Concomitant]
     Active Substance: INSULIN HUMAN
  10. LIDOCAINE PATCH [Concomitant]
     Active Substance: LIDOCAINE
  11. PRAVASTATIN. [Concomitant]
     Active Substance: PRAVASTATIN
  12. CLEARLAX [Concomitant]
     Active Substance: POLYETHYLENE GLYCOL 3350
  13. LOSARTAN. [Concomitant]
     Active Substance: LOSARTAN
  14. ASPIRIN. [Concomitant]
     Active Substance: ASPIRIN

REACTIONS (1)
  - Lung cancer metastatic [None]

NARRATIVE: CASE EVENT DATE: 20201103
